FAERS Safety Report 23567052 (Version 1)
Quarter: 2024Q1

REPORT INFORMATION
  Report Type: Spontaneous
  Country: US (occurrence: US)
  Receive Date: 20240226
  Receipt Date: 20240226
  Transmission Date: 20240409
  Serious: No
  Sender: FDA-Public Use
  Company Number: US-AMNEAL PHARMACEUTICALS-2023-AMRX-04262

PATIENT
  Age: 67 Year
  Sex: Male

DRUGS (1)
  1. RYTARY [Suspect]
     Active Substance: CARBIDOPA\LEVODOPA
     Indication: Product used for unknown indication
     Dosage: 48.75/195 MILLIGRAM, 2 CAPSULES, 4 /DAY
     Route: 048

REACTIONS (2)
  - Symptom recurrence [Unknown]
  - Product use issue [Unknown]

NARRATIVE: CASE EVENT DATE: 20231125
